FAERS Safety Report 13168083 (Version 1)
Quarter: 2017Q1

REPORT INFORMATION
  Report Type: Spontaneous
  Country: RU (occurrence: RU)
  Receive Date: 20170131
  Receipt Date: 20170131
  Transmission Date: 20170428
  Serious: Yes (Life-Threatening, Congenital Anomaly, Other)
  Sender: FDA-Public Use
  Company Number: RU-NEOS THERAPEUTICS, LP-2017NEO00003

PATIENT
  Sex: Female
  Weight: 2.05 kg

DRUGS (1)
  1. AMPHETAMINE [Suspect]
     Active Substance: AMPHETAMINE
     Route: 064

REACTIONS (5)
  - Foetal exposure during pregnancy [Recovered/Resolved]
  - Foetal growth restriction [Unknown]
  - Respiratory failure [Unknown]
  - Drug withdrawal syndrome neonatal [Unknown]
  - Congenital central hypoventilation syndrome [Unknown]
